FAERS Safety Report 19820428 (Version 1)
Quarter: 2021Q3

REPORT INFORMATION
  Report Type: Spontaneous
  Country: FR (occurrence: FR)
  Receive Date: 20210913
  Receipt Date: 20210913
  Transmission Date: 20211014
  Serious: Yes (Hospitalization, Other)
  Sender: FDA-Public Use
  Company Number: FR-ACCORD-238134

PATIENT
  Age: 52 Year
  Sex: Male
  Weight: 130 kg

DRUGS (3)
  1. ASTRAZENECA COVID?19 VACCINE [Suspect]
     Active Substance: AZD-1222
     Indication: COVID-19 IMMUNISATION
     Route: 030
     Dates: start: 202104, end: 202104
  2. ARIPIPRAZOLE. [Suspect]
     Active Substance: ARIPIPRAZOLE
     Indication: BORDERLINE PERSONALITY DISORDER
     Route: 048
  3. COMIRNATY [Suspect]
     Active Substance: TOZINAMERAN
     Indication: COVID-19 IMMUNISATION
     Dosage: DISPERSION CONCENTRATE FOR INJECTION
     Route: 030
     Dates: start: 202107, end: 202107

REACTIONS (3)
  - Thrombosis [Recovered/Resolved]
  - Pulmonary embolism [Recovering/Resolving]
  - Peripheral artery thrombosis [Recovered/Resolved]

NARRATIVE: CASE EVENT DATE: 202104
